FAERS Safety Report 7653613-8 (Version None)
Quarter: 2011Q3

REPORT INFORMATION
  Report Type: 
  Country: None (occurrence: None)
  Receive Date: 20110803
  Receipt Date: 20110725
  Transmission Date: 20111222
  Serious: Yes (Other)
  Sender: FDA-Public Use
  Company Number: GB-BRISTOL-MYERS SQUIBB COMPANY-15921778

PATIENT
  Age: 51 Year
  Sex: Female

DRUGS (5)
  1. DEXAMETHASONE [Interacting]
     Indication: MACULAR OEDEMA
     Dosage: EYE DROPS
  2. EMTRICITABINE AND TENOFOVIR DISOPROXIL FUMARATE [Suspect]
     Indication: ANTIRETROVIRAL THERAPY
  3. BETAMETHASONE [Interacting]
     Indication: MACULAR OEDEMA
     Dosage: EYE OINTMENT
  4. ATAZANAVIR [Interacting]
     Indication: ANTIRETROVIRAL THERAPY
  5. RITONAVIR [Interacting]
     Indication: ANTIRETROVIRAL THERAPY

REACTIONS (4)
  - DRUG INTERACTION [None]
  - CUSHING'S SYNDROME [None]
  - OSTEONECROSIS [None]
  - ADRENAL SUPPRESSION [None]
